FAERS Safety Report 13202721 (Version 3)
Quarter: 2017Q2

REPORT INFORMATION
  Report Type: Spontaneous
  Country: US (occurrence: US)
  Receive Date: 20170209
  Receipt Date: 20170426
  Transmission Date: 20170830
  Serious: No
  Sender: FDA-Public Use
  Company Number: US-009507513-1701USA011662

PATIENT
  Sex: Female
  Weight: 137.42 kg

DRUGS (2)
  1. NEXPLANON [Suspect]
     Active Substance: ETONOGESTREL
     Dosage: UNK
     Route: 059
  2. NEXPLANON [Suspect]
     Active Substance: ETONOGESTREL
     Dosage: LEFT ARM, ROD, UNK
     Route: 059
     Dates: start: 20151012, end: 20170124

REACTIONS (2)
  - Product quality issue [Unknown]
  - Device breakage [Recovered/Resolved]
